FAERS Safety Report 8542891-9 (Version None)
Quarter: 2012Q3

REPORT INFORMATION
  Report Type: 
  Country: None (occurrence: None)
  Receive Date: 20120727
  Receipt Date: 20120713
  Transmission Date: 20120928
  Serious: Yes (Other)
  Sender: FDA-Public Use
  Company Number: CZ-RANBAXY-2012R1-58184

PATIENT
  Age: 42 Year
  Sex: Female

DRUGS (7)
  1. DOXORUBICIN HYDROCHLORIDE [Concomitant]
     Indication: BREAST CANCER
     Dosage: UNK
     Route: 065
  2. CYCLOPHOSPHAMIDE [Concomitant]
     Indication: BREAST CANCER
     Dosage: 600MG/M^2 ON DAY 1 EVERY 3 WEEK
     Route: 042
  3. BISULEPIN [Suspect]
     Indication: CHEMOTHERAPY
     Dosage: UNK
     Route: 065
  4. PACLITAXEL [Suspect]
     Indication: BREAST CANCER
     Dosage: 80 MG/M^2/WEEK ON DAY 1 OVER 1 HOUR
     Route: 042
  5. ONDANSETRON [Suspect]
     Indication: PREMEDICATION
     Dosage: UNK
     Route: 042
  6. DEXAMETHASONE [Suspect]
     Indication: PREMEDICATION
     Dosage: UNK
     Route: 042
  7. RANITIDINE [Suspect]
     Indication: PREMEDICATION
     Dosage: UNK
     Route: 042

REACTIONS (2)
  - TRANSIENT PSYCHOSIS [None]
  - HALLUCINATIONS, MIXED [None]
